FAERS Safety Report 21928934 (Version 1)
Quarter: 2023Q1

REPORT INFORMATION
  Report Type: Spontaneous
  Country: US (occurrence: US)
  Receive Date: 20230131
  Receipt Date: 20230131
  Transmission Date: 20230418
  Serious: No
  Sender: FDA-Public Use
  Company Number: US-AMGEN-USASP2023013067

PATIENT
  Age: 42 Year
  Sex: Male

DRUGS (17)
  1. ROMIPLOSTIM [Suspect]
     Active Substance: ROMIPLOSTIM
     Indication: Immune thrombocytopenia
     Dosage: 3 MICROGRAM, QWK
     Route: 065
     Dates: start: 20200117, end: 20200208
  2. ROMIPLOSTIM [Suspect]
     Active Substance: ROMIPLOSTIM
     Dosage: 2 MICROGRAM, QWK
     Route: 065
     Dates: start: 20200208, end: 20200311
  3. ROMIPLOSTIM [Suspect]
     Active Substance: ROMIPLOSTIM
     Dosage: 2-3 MICROGRAM/KG, WEEKLY
     Route: 065
     Dates: start: 20200312, end: 20200425
  4. ROMIPLOSTIM [Suspect]
     Active Substance: ROMIPLOSTIM
     Dosage: 1-3 MICROGRAM/KG, WEEKLY
     Route: 065
     Dates: start: 20200619, end: 20200812
  5. ROMIPLOSTIM [Suspect]
     Active Substance: ROMIPLOSTIM
     Dosage: 1 MICROGRAM, QWK
     Route: 065
     Dates: start: 20210104, end: 20210111
  6. ROMIPLOSTIM [Suspect]
     Active Substance: ROMIPLOSTIM
     Dosage: 2 MICROGRAM, QWK
     Route: 065
     Dates: start: 20210112, end: 20210117
  7. RITUXIMAB [Suspect]
     Active Substance: RITUXIMAB
     Indication: Immune thrombocytopenia
     Dosage: 800 MILLIGRAM, QWK FOR 4 DOSE
     Route: 065
     Dates: start: 20200312, end: 20200425
  8. PREDNISONE [Concomitant]
     Active Substance: PREDNISONE
     Indication: Product used for unknown indication
     Dosage: 60 MILLIGRAM, QD
     Route: 065
     Dates: start: 20200117, end: 20200208
  9. PREDNISONE [Concomitant]
     Active Substance: PREDNISONE
     Dosage: 30 MILLIGRAM, QD
     Route: 065
     Dates: start: 20200208, end: 20200311
  10. PREDNISONE [Concomitant]
     Active Substance: PREDNISONE
     Dosage: 30 MILLIGRAM, QD
     Route: 065
     Dates: start: 20200312, end: 20200425
  11. PREDNISONE [Concomitant]
     Active Substance: PREDNISONE
     Dosage: 50-60 MILLIGRAM QD
     Route: 065
     Dates: start: 20210104, end: 20210111
  12. PREDNISONE [Concomitant]
     Active Substance: PREDNISONE
     Dosage: 60 MILLIGRAM, QD
     Route: 065
     Dates: start: 20210112, end: 20210117
  13. ELTROMBOPAGUM [Concomitant]
     Indication: Product used for unknown indication
     Dosage: 50 MILLIGRAM, QD
     Route: 065
     Dates: start: 20200813, end: 20201008
  14. HUMAN IMMUNOGLOBULIN G [Concomitant]
     Active Substance: HUMAN IMMUNOGLOBULIN G
     Indication: Product used for unknown indication
     Route: 065
  15. MYCOPHENOLIC ACID [Concomitant]
     Active Substance: MYCOPHENOLIC ACID
     Indication: Product used for unknown indication
     Route: 065
  16. FOSTAMATINIB [Concomitant]
     Active Substance: FOSTAMATINIB
     Indication: Product used for unknown indication
     Dosage: 100 MILLIGRAM, BID FOR 30 DAYS
     Route: 065
     Dates: start: 20210420, end: 20210609
  17. FOSTAMATINIB [Concomitant]
     Active Substance: FOSTAMATINIB
     Dosage: 150 MILLIGRAM, BID FOR 20 DAYS
     Route: 065

REACTIONS (3)
  - Epistaxis [Unknown]
  - Therapy non-responder [Unknown]
  - Off label use [Unknown]
